FAERS Safety Report 21756176 (Version 1)
Quarter: 2022Q4

REPORT INFORMATION
  Report Type: Report from Study
  Country: NL (occurrence: NL)
  Receive Date: 20221220
  Receipt Date: 20221220
  Transmission Date: 20230113
  Serious: Yes (Hospitalization)
  Sender: FDA-Public Use
  Company Number: NL-GENMAB-2022-01387

PATIENT
  Age: 33 Year
  Sex: Female
  Weight: 72 kg

DRUGS (23)
  1. TISOTUMAB VEDOTIN [Suspect]
     Active Substance: TISOTUMAB VEDOTIN
     Indication: Cervix carcinoma
     Dosage: 2 MILLIGRAM/KILOGRAM, 1Q3W
     Route: 042
     Dates: start: 20221026
  2. BEVACIZUMAB [Suspect]
     Active Substance: BEVACIZUMAB
     Indication: Cervix cancer metastatic
     Dosage: 15 MILLIGRAM/KILOGRAM, 1Q3W
     Route: 042
     Dates: start: 20221026
  3. PEMBROLIZUMAB [Suspect]
     Active Substance: PEMBROLIZUMAB
     Indication: Cervix carcinoma
     Dosage: 200 MILLIGRAM, 1Q3W
     Route: 042
     Dates: start: 20221026
  4. CARBOPLATIN [Suspect]
     Active Substance: CARBOPLATIN
     Indication: Cervix cancer metastatic
     Dosage: 5 AUC, 1Q3W
     Route: 042
     Dates: start: 20221026
  5. MOVICOLON [Concomitant]
     Active Substance: POLYETHYLENE GLYCOL 3350\POTASSIUM CHLORIDE\SODIUM BICARBONATE\SODIUM CHLORIDE
     Indication: Prophylaxis
     Dosage: UNK, QD
     Route: 048
     Dates: start: 20220926
  6. MOVICOLON [Concomitant]
     Active Substance: POLYETHYLENE GLYCOL 3350\POTASSIUM CHLORIDE\SODIUM BICARBONATE\SODIUM CHLORIDE
     Indication: Constipation
  7. OXYCONTIN [Concomitant]
     Active Substance: OXYCODONE HYDROCHLORIDE
     Indication: Back pain
     Dosage: 15 MILLIGRAM, BID
     Route: 048
     Dates: start: 20221011, end: 20221020
  8. OXYCONTIN [Concomitant]
     Active Substance: OXYCODONE HYDROCHLORIDE
     Indication: Pain in extremity
     Dosage: 20 MILLIGRAM, BID
     Route: 048
     Dates: start: 20221021, end: 20221129
  9. OXYCODONE HYDROCHLORIDE [Concomitant]
     Active Substance: OXYCODONE HYDROCHLORIDE
     Indication: Back pain
     Dosage: 5 MILLIGRAM, PRN
     Route: 048
     Dates: start: 20220926
  10. ACETAMINOPHEN [Concomitant]
     Active Substance: ACETAMINOPHEN
     Indication: Back pain
     Dosage: 1000 MILLIGRAM, PRN
     Route: 048
     Dates: start: 20220926
  11. ACETAMINOPHEN [Concomitant]
     Active Substance: ACETAMINOPHEN
     Indication: Pain in extremity
     Dosage: UNK
     Route: 065
     Dates: start: 20221019
  12. METOCLOPRAMIDE [Concomitant]
     Active Substance: METOCLOPRAMIDE
     Indication: Antiemetic supportive care
     Dosage: 20 MILLIGRAM, PRN
     Route: 048
     Dates: start: 20221026
  13. METOCLOPRAMIDE [Concomitant]
     Active Substance: METOCLOPRAMIDE
     Indication: Nausea
     Dosage: 20 MILLIGRAM, PRN
     Route: 048
     Dates: start: 20221028
  14. METOCLOPRAMIDE [Concomitant]
     Active Substance: METOCLOPRAMIDE
     Dosage: 10 MILLIGRAM, TID
     Route: 042
     Dates: start: 20221123, end: 20221125
  15. OXYCODONE [Concomitant]
     Active Substance: OXYCODONE
     Indication: Back pain
     Dosage: UNK
     Route: 065
     Dates: start: 20221021
  16. OXYCODONE [Concomitant]
     Active Substance: OXYCODONE
     Indication: Pain in extremity
  17. ONDANSETRON [Concomitant]
     Active Substance: ONDANSETRON
     Indication: Antiemetic supportive care
     Dosage: UNK
     Route: 065
     Dates: start: 20221026
  18. PHENYLEPHRINE HYDROCHLORIDE [Concomitant]
     Active Substance: PHENYLEPHRINE HYDROCHLORIDE
     Indication: Prophylaxis
     Dosage: UNK
     Route: 065
     Dates: start: 20221026
  19. CARBOMER [Concomitant]
     Active Substance: CARBOMER
     Indication: Prophylaxis
     Dosage: 1 DROP, TID IN BOTH EYES
     Route: 047
     Dates: start: 20221017
  20. CARBOMER [Concomitant]
     Active Substance: CARBOMER
     Indication: Dry eye
     Dosage: UNK
     Route: 065
     Dates: start: 20221026
  21. VASELINE CETOMACROGOL CREAM [Concomitant]
     Indication: Erythema
     Dosage: 10 PERCENT, PRN
     Route: 061
     Dates: start: 20221117
  22. ANTAGEL [ALUMINIUM HYDROXIDE;MAGNESIUM HYDROXIDE] [Concomitant]
     Indication: Nausea
     Dosage: 15 MILLILITER, QD
     Route: 048
     Dates: start: 20221123
  23. DALTEPARIN [Concomitant]
     Active Substance: DALTEPARIN
     Indication: Prophylaxis against diarrhoea
     Dosage: 2500 INTERNATIONAL UNIT, QD
     Route: 042
     Dates: start: 20221123, end: 20221125

REACTIONS (1)
  - Mucosal inflammation [Recovered/Resolved]

NARRATIVE: CASE EVENT DATE: 20221122
